FAERS Safety Report 13766298 (Version 1)
Quarter: 2017Q3

REPORT INFORMATION
  Report Type: Spontaneous
  Country: DE (occurrence: DE)
  Receive Date: 20170719
  Receipt Date: 20170719
  Transmission Date: 20171127
  Serious: Yes (Hospitalization, Other)
  Sender: FDA-Public Use
  Company Number: DE-TEVA-785796GER

PATIENT
  Sex: Male

DRUGS (1)
  1. SIMVASTATIN 40 [Suspect]
     Active Substance: SIMVASTATIN
     Dates: end: 201704

REACTIONS (14)
  - Hepatic enzyme abnormal [Recovered/Resolved]
  - Skin reaction [Recovered/Resolved]
  - Pneumonitis [Recovered/Resolved]
  - Weight decreased [Recovered/Resolved]
  - Myalgia [Recovered/Resolved]
  - Decreased appetite [Recovered/Resolved]
  - Vasculitis [Recovered/Resolved]
  - Anaemia [Recovered/Resolved]
  - Hepatitis [Recovered/Resolved]
  - Dyspnoea [Recovered/Resolved]
  - Cough [Recovered/Resolved]
  - Leukocytosis [Recovered/Resolved]
  - Chest pain [Recovered/Resolved]
  - Pancreatitis chronic [Recovered/Resolved]
